FAERS Safety Report 10222286 (Version 1)
Quarter: 2014Q2

REPORT INFORMATION
  Report Type: Spontaneous
  Country: MY (occurrence: MY)
  Receive Date: 20140606
  Receipt Date: 20140606
  Transmission Date: 20141212
  Serious: Yes (Hospitalization)
  Sender: FDA-Public Use
  Company Number: MY-GLAXOSMITHKLINE-B1000952A

PATIENT
  Age: 35 Year
  Sex: Female

DRUGS (3)
  1. CEFUROXIME [Suspect]
     Indication: PELVIC INFLAMMATORY DISEASE
     Dosage: 750MG THREE TIMES PER DAY
     Route: 065
  2. METRONIDAZOLE [Suspect]
     Indication: PELVIC INFLAMMATORY DISEASE
     Dosage: 500MG THREE TIMES PER DAY
     Route: 065
  3. AMPICILLIN [Concomitant]
     Indication: PELVIC INFLAMMATORY DISEASE
     Dosage: 500MG THREE TIMES PER DAY
     Route: 042

REACTIONS (9)
  - Psychotic disorder [Recovered/Resolved]
  - Irritability [Unknown]
  - Anger [Unknown]
  - Crying [Unknown]
  - Insomnia [Unknown]
  - Depressed mood [Unknown]
  - Decreased appetite [Unknown]
  - Hallucination, auditory [Unknown]
  - Screaming [Unknown]
